FAERS Safety Report 4602014-5 (Version None)
Quarter: 2005Q1

REPORT INFORMATION
  Report Type: 
  Country: None (occurrence: None)
  Receive Date: 20050201
  Receipt Date: 20040315
  Transmission Date: 20050727
  Serious: Yes (Other)
  Sender: FDA-Public Use
  Company Number: 200415545BWH

PATIENT
  Age: 45 Year
  Sex: Female
  Weight: 66.6788 kg

DRUGS (8)
  1. AVELOX [Suspect]
     Indication: TOOTH ABSCESS
     Dosage: 400 MG, QD, ORAL
     Route: 048
     Dates: start: 20040224, end: 20040225
  2. BIRTH CONTROL PILLS [Concomitant]
  3. EFFEXOR [Concomitant]
  4. DARVOCET-N 100 [Concomitant]
  5. DURATUSS [Concomitant]
  6. SEREVENT INH [Concomitant]
  7. ALBUTEROL [Concomitant]
  8. CIPRO [Concomitant]

REACTIONS (7)
  - ANAPHYLACTIC REACTION [None]
  - ARTHRALGIA [None]
  - CHEST PAIN [None]
  - DYSPNOEA [None]
  - HEART RATE IRREGULAR [None]
  - TENDONITIS [None]
  - VOMITING [None]
